FAERS Safety Report 8965464 (Version 2)
Quarter: 2013Q1

REPORT INFORMATION
  Report Type: Spontaneous
  Country: US (occurrence: US)
  Receive Date: 20121213
  Receipt Date: 20130227
  Transmission Date: 20140127
  Serious: Yes (Life-Threatening, Hospitalization)
  Sender: FDA-Public Use
  Company Number: US-BRISTOL-MYERS SQUIBB COMPANY-17170291

PATIENT
  Age: 63 Year
  Sex: Female
  Weight: 56.69 kg

DRUGS (20)
  1. METFORMIN HCL [Suspect]
  2. PLAVIX [Suspect]
     Dosage: INTERRUPTED ON 20NOV12 AND RESTARTED ON ALTERNATE DAYS
     Dates: start: 20080613
  3. BABY ASPIRIN [Suspect]
  4. MULTIVITAMIN [Concomitant]
  5. THEOPHYLLINE [Concomitant]
  6. LOTENSIN [Concomitant]
  7. COREG [Concomitant]
  8. PROTONIX [Concomitant]
  9. ZOCOR [Concomitant]
  10. FERROUS SULFATE [Concomitant]
  11. ELAVIL [Concomitant]
  12. MIRALAX [Concomitant]
  13. ZYRTEC [Concomitant]
  14. NITROSTAT [Concomitant]
  15. DIFLUCAN [Concomitant]
     Indication: FUNGAL INFECTION
  16. VISTARIL [Concomitant]
  17. SPIRIVA [Concomitant]
  18. ALBUTEROL [Concomitant]
     Indication: CHRONIC OBSTRUCTIVE PULMONARY DISEASE
     Route: 055
  19. ATROVENT INHALER [Concomitant]
  20. VICODIN [Concomitant]

REACTIONS (1)
  - Melaena [Unknown]
